FAERS Safety Report 4833214-7 (Version None)
Quarter: 2005Q4

REPORT INFORMATION
  Report Type: 
  Country: None (occurrence: None)
  Receive Date: 20051117
  Receipt Date: 20051102
  Transmission Date: 20060501
  Serious: Yes (Other)
  Sender: FDA-Public Use
  Company Number: JP_051108079

PATIENT
  Age: 11 Year
  Sex: Male

DRUGS (2)
  1. SOMATROPIN [Suspect]
     Indication: GROWTH HORMONE DEFICIENCY
  2. THYROID HORMONE REPLACEMENT THERAPY [Concomitant]

REACTIONS (5)
  - ARNOLD-CHIARI MALFORMATION [None]
  - COORDINATION ABNORMAL [None]
  - DIZZINESS [None]
  - NEUROLOGICAL SYMPTOM [None]
  - TREMOR [None]
